FAERS Safety Report 20404878 (Version 2)
Quarter: 2022Q1

REPORT INFORMATION
  Report Type: Spontaneous
  Country: CN (occurrence: CN)
  Receive Date: 20220131
  Receipt Date: 20220222
  Transmission Date: 20220423
  Serious: No
  Sender: FDA-Public Use
  Company Number: CN-LUPIN PHARMACEUTICALS INC.-2022-01084

PATIENT
  Age: 22 Year
  Sex: Female

DRUGS (7)
  1. METHYLPREDNISOLONE [Suspect]
     Active Substance: METHYLPREDNISOLONE
     Indication: Proteinuria
     Dosage: UNK
     Route: 065
  2. METHYLPREDNISOLONE [Suspect]
     Active Substance: METHYLPREDNISOLONE
     Indication: Haematuria
  3. PREDNISONE [Suspect]
     Active Substance: PREDNISONE
     Indication: Symptomatic treatment
     Dosage: UNK
     Route: 065
  4. PREDNISONE [Suspect]
     Active Substance: PREDNISONE
     Indication: Fibrillary glomerulonephritis
  5. PREDNISONE [Suspect]
     Active Substance: PREDNISONE
     Indication: Glomerulonephritis membranoproliferative
  6. CYCLOPHOSPHAMIDE [Suspect]
     Active Substance: CYCLOPHOSPHAMIDE
     Indication: Fibrillary glomerulonephritis
     Dosage: UNK
     Route: 065
  7. CYCLOPHOSPHAMIDE [Suspect]
     Active Substance: CYCLOPHOSPHAMIDE
     Indication: Glomerulonephritis membranoproliferative

REACTIONS (1)
  - Exposure during pregnancy [Unknown]
